FAERS Safety Report 9476896 (Version 2)
Quarter: 2013Q3

REPORT INFORMATION
  Report Type: Spontaneous
  Country: US (occurrence: US)
  Receive Date: 20130826
  Receipt Date: 20130926
  Transmission Date: 20140515
  Serious: Yes (Disabling)
  Sender: FDA-Public Use
  Company Number: US-GLAXOSMITHKLINE-A1038974A

PATIENT
  Age: 60 Year
  Sex: Female
  Weight: 71.8 kg

DRUGS (1)
  1. VENTOLIN [Suspect]
     Indication: WHEEZING
     Dosage: 2PUFF AS REQUIRED
     Route: 055

REACTIONS (1)
  - Respiratory failure [Unknown]
